FAERS Safety Report 20866491 (Version 3)
Quarter: 2022Q3

REPORT INFORMATION
  Report Type: Spontaneous
  Country: JP (occurrence: JP)
  Receive Date: 20220524
  Receipt Date: 20220824
  Transmission Date: 20221027
  Serious: Yes (Hospitalization, Other)
  Sender: FDA-Public Use
  Company Number: JP-ONO-2022JP013317

PATIENT
  Age: 78 Year
  Sex: Male

DRUGS (7)
  1. OPDIVO [Suspect]
     Active Substance: NIVOLUMAB
     Indication: Gastric cancer
     Dosage: 360 MG INJECTION(120)
     Route: 041
     Dates: start: 20220422, end: 202205
  2. OPDIVO [Suspect]
     Active Substance: NIVOLUMAB
     Route: 041
  3. ANAMORELIN HYDROCHLORIDE [Suspect]
     Active Substance: ANAMORELIN HYDROCHLORIDE
     Indication: Cachexia
     Dosage: 100 MG
     Route: 048
     Dates: start: 20220629, end: 20220706
  4. TS-1 [Suspect]
     Active Substance: GIMERACIL\OTERACIL\TEGAFUR
     Indication: Gastric cancer
     Dosage: UNK
     Route: 065
     Dates: start: 202204, end: 202205
  5. TS-1 [Suspect]
     Active Substance: GIMERACIL\OTERACIL\TEGAFUR
     Dosage: UNK
     Route: 065
  6. OXALIPLATIN [Concomitant]
     Active Substance: OXALIPLATIN
     Indication: Gastric cancer
     Dosage: UNK
     Route: 065
     Dates: start: 202204, end: 202205
  7. OXALIPLATIN [Concomitant]
     Active Substance: OXALIPLATIN
     Route: 065

REACTIONS (3)
  - Gastric stenosis [Not Recovered/Not Resolved]
  - Pyrexia [Recovered/Resolved]
  - Enterocolitis [Recovered/Resolved]

NARRATIVE: CASE EVENT DATE: 20220501
